FAERS Safety Report 20735182 (Version 3)
Quarter: 2023Q2

REPORT INFORMATION
  Report Type: Report from Study
  Country: FR (occurrence: FR)
  Receive Date: 20220421
  Receipt Date: 20230523
  Transmission Date: 20230721
  Serious: Yes (Hospitalization)
  Sender: FDA-Public Use
  Company Number: FR-SERVIER-S22004069

PATIENT

DRUGS (8)
  1. PEGASPARGASE [Suspect]
     Active Substance: PEGASPARGASE
     Indication: Acute lymphocytic leukaemia
     Dosage: 3925 IU, D4
     Route: 042
     Dates: start: 20220303, end: 20220303
  2. VINCRISTINE [Suspect]
     Active Substance: VINCRISTINE
     Indication: Acute lymphocytic leukaemia
     Dosage: 2 MG, QD, D1, D8, D15
     Route: 042
     Dates: start: 20220228, end: 20220314
  3. DOXORUBICIN [Suspect]
     Active Substance: DOXORUBICIN
     Indication: Acute lymphocytic leukaemia
     Dosage: 39.2 MG, D1, D8, D15
     Route: 042
     Dates: start: 20220228, end: 20220314
  4. DEXAMETHASONE [Suspect]
     Active Substance: DEXAMETHASONE
     Indication: Acute lymphocytic leukaemia
     Dosage: 105 MG, QD, D1 TO D7, D15 TO D21
     Route: 048
     Dates: start: 20220228, end: 20220320
  5. METHOTREXATE [Suspect]
     Active Substance: METHOTREXATE
     Indication: Acute lymphocytic leukaemia
     Dosage: 15 MG, D4, D52
     Route: 037
     Dates: start: 20220303, end: 20220421
  6. CYTARABINE [Suspect]
     Active Substance: CYTARABINE
     Indication: Acute lymphocytic leukaemia
     Dosage: 30 MG, D4, D52
     Route: 037
     Dates: start: 20220303, end: 20220303
  7. CYTARABINE [Suspect]
     Active Substance: CYTARABINE
     Dosage: 30 MG, D4, D52
     Route: 037
     Dates: start: 20220321, end: 20220421
  8. HYDROCORTISONE [Suspect]
     Active Substance: HYDROCORTISONE
     Indication: Acute lymphocytic leukaemia
     Dosage: 15 MG, D4, D52
     Route: 037
     Dates: start: 20220303

REACTIONS (1)
  - Delirium [Recovered/Resolved]

NARRATIVE: CASE EVENT DATE: 20220328
